FAERS Safety Report 9246928 (Version 1)
Quarter: 2013Q2

REPORT INFORMATION
  Report Type: Spontaneous
  Country: US (occurrence: US)
  Receive Date: 20130422
  Receipt Date: 20130422
  Transmission Date: 20140414
  Serious: No
  Sender: FDA-Public Use
  Company Number: US-ABBOTT-13P-163-1044535-00

PATIENT
  Age: 9 Year
  Sex: Female
  Weight: 36.32 kg

DRUGS (1)
  1. LUPRON DEPOT-PED [Suspect]
     Indication: PRECOCIOUS PUBERTY
     Dates: start: 20130104

REACTIONS (1)
  - Arthralgia [Not Recovered/Not Resolved]
